FAERS Safety Report 4425600-4 (Version None)
Quarter: 2004Q3

REPORT INFORMATION
  Report Type: 
  Country: None (occurrence: None)
  Receive Date: 20040810
  Receipt Date: 20040730
  Transmission Date: 20050211
  Serious: Yes (Other)
  Sender: FDA-Public Use
  Company Number: HQWYE092809AUG04

PATIENT
  Sex: Female

DRUGS (2)
  1. PREMPRO [Suspect]
     Indication: MENOPAUSE
  2. PREMARIN [Suspect]
     Indication: MENOPAUSE

REACTIONS (3)
  - CARDIAC DISORDER [None]
  - RAYNAUD'S PHENOMENON [None]
  - RETINAL VEIN OCCLUSION [None]
